FAERS Safety Report 13914698 (Version 1)
Quarter: 2017Q3

REPORT INFORMATION
  Report Type: Spontaneous
  Country: US (occurrence: None)
  Receive Date: 20170827
  Receipt Date: 20170827
  Transmission Date: 20171127
  Serious: Yes (Hospitalization)
  Sender: FDA-Public Use
  Company Number: None

PATIENT
  Age: 56 Year
  Sex: Female
  Weight: 74.8 kg

DRUGS (1)
  1. PACLITAXEL 6/MG/ML 50ML VIAL [Suspect]
     Active Substance: PACLITAXEL
     Indication: BREAST CANCER
     Route: 042
     Dates: start: 20170607

REACTIONS (4)
  - Chest pain [None]
  - Emotional distress [None]
  - Abdominal pain [None]
  - Neck pain [None]

NARRATIVE: CASE EVENT DATE: 20170812
